FAERS Safety Report 6626829-7 (Version None)
Quarter: 2010Q1

REPORT INFORMATION
  Report Type: 
  Country: None (occurrence: None)
  Receive Date: 20100311
  Receipt Date: 20100301
  Transmission Date: 20100710
  Serious: Yes (Death, Other)
  Sender: FDA-Public Use
  Company Number: US-RANBAXY-2010US-32160

PATIENT

DRUGS (11)
  1. ISOPTIN SR [Suspect]
     Indication: HYPERTENSION
     Dosage: 240 MG, 1 IN 1 D
     Route: 065
     Dates: start: 19991101
  2. MAVIK [Suspect]
     Indication: HYPERTENSION
     Dosage: 2 MG, 2 IN 1 D
     Route: 065
     Dates: start: 20001023
  3. MAVIK [Suspect]
     Dosage: 2 MG, 1 IN 1 D
     Route: 065
     Dates: start: 20000501, end: 20001023
  4. TARKA [Suspect]
     Indication: HYPERTENSION
     Dosage: 240/2 MG, QD
     Dates: start: 19991208
  5. TAMOXIFEN CITRATE [Concomitant]
     Indication: DRUG USE FOR UNKNOWN INDICATION
     Dosage: 20 MG 1 IN 1 D
     Route: 048
  6. METOLAZONE [Concomitant]
     Indication: DRUG USE FOR UNKNOWN INDICATION
     Dosage: 5 MG 1 IN 1 AS REQUIRED
     Route: 048
  7. ALPRAZOLAM [Concomitant]
     Indication: DRUG USE FOR UNKNOWN INDICATION
     Dosage: 0.25 MG, 3 IN 1 D
     Route: 048
  8. TOCOPHEROL CONCENTRATE CAP [Concomitant]
     Indication: DRUG USE FOR UNKNOWN INDICATION
     Dosage: 400 IUT, 1 IN 1 D
     Route: 048
  9. RANITIDINE [Concomitant]
     Indication: DRUG USE FOR UNKNOWN INDICATION
     Dosage: 150 MG 2 IN 1 D
     Route: 048
  10. DIGOXIN [Concomitant]
     Indication: DRUG USE FOR UNKNOWN INDICATION
     Route: 065
  11. INSULIN [Concomitant]
     Indication: DRUG USE FOR UNKNOWN INDICATION
     Route: 065

REACTIONS (1)
  - DEATH [None]
